FAERS Safety Report 10411396 (Version 1)
Quarter: 2014Q3

REPORT INFORMATION
  Report Type: Spontaneous
  Country: DK (occurrence: DK)
  Receive Date: 20140827
  Receipt Date: 20140827
  Transmission Date: 20150326
  Serious: Yes (Hospitalization)
  Sender: FDA-Public Use
  Company Number: DK-ROCHE-1452994

PATIENT
  Sex: Male

DRUGS (6)
  1. RIVOTRIL [Interacting]
     Active Substance: CLONAZEPAM
     Route: 065
  2. RIVOTRIL [Interacting]
     Active Substance: CLONAZEPAM
     Route: 065
     Dates: end: 2009
  3. LEPONEX [Interacting]
     Active Substance: CLOZAPINE
     Indication: SCHIZOPHRENIA
     Route: 065
  4. RIVOTRIL [Interacting]
     Active Substance: CLONAZEPAM
     Dosage: END DATE: SUMMER OF 2013
     Route: 065
     Dates: end: 2013
  5. RIVOTRIL [Suspect]
     Active Substance: CLONAZEPAM
     Indication: SEDATIVE THERAPY
     Route: 065
     Dates: end: 2006
  6. RIVOTRIL [Interacting]
     Active Substance: CLONAZEPAM
     Route: 065
     Dates: end: 2012

REACTIONS (5)
  - Psychotic disorder [Recovered/Resolved]
  - Suicidal ideation [Recovered/Resolved]
  - Drug withdrawal syndrome [Recovered/Resolved]
  - Delirium [Recovered/Resolved]
  - Schizophrenia [Recovered/Resolved]

NARRATIVE: CASE EVENT DATE: 2006
